FAERS Safety Report 8769846 (Version 3)
Quarter: 2012Q4

REPORT INFORMATION
  Report Type: 
  Country: US (occurrence: US)
  Receive Date: 20120906
  Receipt Date: 20121004
  Transmission Date: 20130627
  Serious: Yes (Other)
  Sender: FDA-Public Use
  Company Number: US-TEVA-356446USA

PATIENT
  Age: 75 Year
  Sex: Female

DRUGS (1)
  1. AMPHETAMINE SULFATE\DEXTROAMPHETAMINE [Suspect]

REACTIONS (6)
  - Blindness [Unknown]
  - Malaise [Unknown]
  - Nervousness [Unknown]
  - Nausea [Unknown]
  - Balance disorder [Unknown]
  - Abdominal pain upper [Unknown]
